FAERS Safety Report 11688706 (Version 8)
Quarter: 2017Q1

REPORT INFORMATION
  Report Type: Report from Study
  Country: CA (occurrence: CA)
  Receive Date: 20151102
  Receipt Date: 20170123
  Transmission Date: 20170428
  Serious: Yes (Other)
  Sender: FDA-Public Use
  Company Number: CA-ROCHE-1629292

PATIENT
  Sex: Male

DRUGS (29)
  1. ACTEMRA [Suspect]
     Active Substance: TOCILIZUMAB
     Route: 042
     Dates: start: 20160104
  2. RABEPRAZOLE [Concomitant]
     Active Substance: RABEPRAZOLE
  3. VOLTAREN [Concomitant]
     Active Substance: DICLOFENAC SODIUM
     Route: 065
  4. OXAZEPAM. [Concomitant]
     Active Substance: OXAZEPAM
  5. SYNTHROID [Concomitant]
     Active Substance: LEVOTHYROXINE SODIUM
  6. DOXAZOSIN [Concomitant]
     Active Substance: DOXAZOSIN\DOXAZOSIN MESYLATE
  7. TELMISARTAN. [Concomitant]
     Active Substance: TELMISARTAN
  8. METHOTREXATE. [Concomitant]
     Active Substance: METHOTREXATE
  9. ACTEMRA [Suspect]
     Active Substance: TOCILIZUMAB
     Indication: RHEUMATOID ARTHRITIS
     Route: 042
     Dates: start: 20150507
  10. CLONIDINE. [Concomitant]
     Active Substance: CLONIDINE
  11. ADALAT [Concomitant]
     Active Substance: NIFEDIPINE
  12. ACETYLSALICYLIC ACID [Concomitant]
     Active Substance: ASPIRIN
  13. HYDRALAZINE [Concomitant]
     Active Substance: HYDRALAZINE HYDROCHLORIDE
  14. DETROL [Concomitant]
     Active Substance: TOLTERODINE TARTRATE
  15. DOCUSATE [Concomitant]
     Active Substance: DOCUSATE
  16. FOLIC ACID. [Concomitant]
     Active Substance: FOLIC ACID
  17. EFFEXOR [Concomitant]
     Active Substance: VENLAFAXINE HYDROCHLORIDE
  18. CELEBREX [Concomitant]
     Active Substance: CELECOXIB
  19. EFUDEX [Concomitant]
     Active Substance: FLUOROURACIL
  20. METOPROLOL. [Concomitant]
     Active Substance: METOPROLOL
  21. AZOPT [Concomitant]
     Active Substance: BRINZOLAMIDE
  22. HYDROXYCHLOROQUINE [Concomitant]
     Active Substance: HYDROXYCHLOROQUINE
  23. LIPITOR [Concomitant]
     Active Substance: ATORVASTATIN CALCIUM
  24. HCTZ [Concomitant]
     Active Substance: HYDROCHLOROTHIAZIDE
  25. MIRTAZAPINE. [Concomitant]
     Active Substance: MIRTAZAPINE
  26. PREDNISONE. [Concomitant]
     Active Substance: PREDNISONE
  27. LEVOCARB [Concomitant]
     Active Substance: CARBIDOPA\LEVODOPA
  28. RISPERDAL [Concomitant]
     Active Substance: RISPERIDONE
  29. LISINOPRIL. [Concomitant]
     Active Substance: LISINOPRIL

REACTIONS (6)
  - Dysuria [Not Recovered/Not Resolved]
  - Arthralgia [Not Recovered/Not Resolved]
  - Urinary tract infection [Not Recovered/Not Resolved]
  - Kidney infection [Not Recovered/Not Resolved]
  - Prostatic disorder [Unknown]
  - Intestinal polyp [Not Recovered/Not Resolved]
